FAERS Safety Report 11666719 (Version 2)
Quarter: 2015Q4

REPORT INFORMATION
  Report Type: Report from Study
  Country: BR (occurrence: BR)
  Receive Date: 20151027
  Receipt Date: 20151029
  Transmission Date: 20160304
  Serious: Yes (Hospitalization, Other)
  Sender: FDA-Public Use
  Company Number: PHHY2015BR138946

PATIENT
  Sex: Male

DRUGS (1)
  1. EXJADE [Suspect]
     Active Substance: DEFERASIROX
     Indication: ANAEMIA
     Dosage: 3 DF, QD
     Route: 065

REACTIONS (7)
  - Wound [Unknown]
  - Abdominal pain [Unknown]
  - Abdominal pain upper [Unknown]
  - Hepatitis [Recovering/Resolving]
  - Lung disorder [Recovering/Resolving]
  - Pruritus [Unknown]
  - Hypersensitivity [Unknown]
